FAERS Safety Report 17110213 (Version 1)
Quarter: 2019Q4

REPORT INFORMATION
  Report Type: Spontaneous
  Country: CN (occurrence: CN)
  Receive Date: 20191204
  Receipt Date: 20191204
  Transmission Date: 20200122
  Serious: Yes (Hospitalization, Other)
  Sender: FDA-Public Use
  Company Number: CN-009507513-1912CHN000630

PATIENT
  Age: 49 Year
  Sex: Female
  Weight: 56 kg

DRUGS (4)
  1. PHARMORUBICIN [Suspect]
     Active Substance: EPIRUBICIN
     Indication: BREAST CANCER
     Dosage: 130 MILLIGRAM, QD
     Route: 041
     Dates: start: 20191109
  2. EMEND [Suspect]
     Active Substance: APREPITANT
     Indication: PROPHYLAXIS OF NAUSEA AND VOMITING
     Dosage: 125 MILLIGRAM, QD
     Route: 048
     Dates: start: 20191109, end: 20191109
  3. EMEND [Suspect]
     Active Substance: APREPITANT
     Dosage: 80 MILLIGRAM, QD
     Route: 048
     Dates: start: 20191110, end: 20191111
  4. ENDOXAN [Suspect]
     Active Substance: CYCLOPHOSPHAMIDE
     Indication: BREAST CANCER
     Dosage: 0.9 GRAM, QD
     Route: 041
     Dates: start: 20191109

REACTIONS (7)
  - Visual impairment [Recovered/Resolved]
  - Eating disorder [Recovering/Resolving]
  - Aphasia [Recovering/Resolving]
  - Altered state of consciousness [Recovering/Resolving]
  - Tremor [Recovered/Resolved]
  - Dysphoria [Recovering/Resolving]
  - Headache [Unknown]

NARRATIVE: CASE EVENT DATE: 201911
